FAERS Safety Report 5035150-2 (Version None)
Quarter: 2006Q2

REPORT INFORMATION
  Report Type: 
  Country: None (occurrence: None)
  Receive Date: 20060519
  Receipt Date: 20060125
  Transmission Date: 20061013
  Serious: No
  Sender: FDA-Public Use
  Company Number: TPA2006A00144

PATIENT
  Age: 55 Year
  Sex: Female
  Weight: 52.1637 kg

DRUGS (4)
  1. ROZEREM [Suspect]
     Indication: BLOOD CHOLESTEROL INCREASED
     Dosage: 8 MG, HS, PER ORAL
     Route: 048
     Dates: start: 20060121
  2. ROZEREM [Suspect]
     Indication: INSOMNIA
     Dosage: 8 MG, HS, PER ORAL
     Route: 048
     Dates: start: 20060121
  3. LIPITOR [Concomitant]
  4. NEXIUM [Concomitant]

REACTIONS (1)
  - DRUG INEFFECTIVE [None]
